FAERS Safety Report 7096218-2 (Version None)
Quarter: 2010Q4

REPORT INFORMATION
  Report Type: 
  Country: None (occurrence: None)
  Receive Date: 20101111
  Receipt Date: 20101105
  Transmission Date: 20110411
  Serious: No
  Sender: FDA-Public Use
  Company Number: US-ROCHE-739760

PATIENT
  Sex: Female
  Weight: 19.5 kg

DRUGS (2)
  1. TAMIFLU [Suspect]
     Indication: INFLUENZA
     Dosage: STRENGTH: 12MG/ML
     Route: 048
     Dates: start: 20101102
  2. TAMIFLU [Suspect]
     Route: 048
     Dates: start: 20101103, end: 20101104

REACTIONS (2)
  - MEDICATION ERROR [None]
  - NO ADVERSE EVENT [None]
